FAERS Safety Report 8362176-3 (Version None)
Quarter: 2012Q2

REPORT INFORMATION
  Report Type: 
  Country: None (occurrence: None)
  Receive Date: 20120515
  Receipt Date: 20120510
  Transmission Date: 20120825
  Serious: Yes (Hospitalization)
  Sender: FDA-Public Use
  Company Number: PHHY2012IT039723

PATIENT
  Sex: Male

DRUGS (2)
  1. BECLOMETHASONE DIPROPIONATE [Concomitant]
     Indication: COUGH
     Dates: start: 20120101, end: 20120102
  2. AMOXICILLIN [Suspect]
     Indication: COUGH
     Dosage: 15 ML, TOTAL DOSAGE
     Dates: start: 20120102, end: 20120102

REACTIONS (3)
  - DYSPNOEA [None]
  - PALLOR [None]
  - DECREASED APPETITE [None]
